FAERS Safety Report 17060650 (Version 1)
Quarter: 2019Q4

REPORT INFORMATION
  Report Type: Report from Study
  Country: CA (occurrence: CA)
  Receive Date: 20191121
  Receipt Date: 20191121
  Transmission Date: 20200122
  Serious: Yes (Death)
  Sender: FDA-Public Use
  Company Number: PHHY2019CA173269

PATIENT
  Age: 74 Year
  Sex: Male

DRUGS (4)
  1. REVOLADE [Suspect]
     Active Substance: ELTROMBOPAG
     Indication: IMMUNE THROMBOCYTOPENIC PURPURA
     Dosage: 50 MG, UNK
     Route: 048
     Dates: start: 20190802
  2. REVOLADE [Suspect]
     Active Substance: ELTROMBOPAG
     Indication: MYELODYSPLASTIC SYNDROME
  3. REVOLADE [Suspect]
     Active Substance: ELTROMBOPAG
     Indication: CHRONIC MYELOMONOCYTIC LEUKAEMIA
  4. REVOLADE [Suspect]
     Active Substance: ELTROMBOPAG
     Indication: MYELOPROLIFERATIVE NEOPLASM

REACTIONS (2)
  - Eastern Cooperative Oncology Group performance status worsened [Unknown]
  - Death [Fatal]

NARRATIVE: CASE EVENT DATE: 20191030
